FAERS Safety Report 24340089 (Version 3)
Quarter: 2024Q4

REPORT INFORMATION
  Report Type: Spontaneous
  Country: US (occurrence: US)
  Receive Date: 20240919
  Receipt Date: 20241108
  Transmission Date: 20250115
  Serious: Yes (Death)
  Sender: JOHNSON AND JOHNSON
  Company Number: US-JNJFOC-20240949376

PATIENT
  Age: 67 Year
  Sex: Female

DRUGS (1)
  1. OPSUMIT [Suspect]
     Active Substance: MACITENTAN
     Indication: Product used for unknown indication
     Dosage: TAKE 1 TABLET BY MOUTH ONCE DAILY?THERAPY END DATE //2024
     Route: 048
     Dates: start: 2023

REACTIONS (4)
  - Intestinal obstruction [Fatal]
  - Hypotension [Fatal]
  - Cardiac arrest [Fatal]
  - Gastrointestinal obstruction [Fatal]
